FAERS Safety Report 25710635 (Version 1)
Quarter: 2025Q3

REPORT INFORMATION
  Report Type: Spontaneous
  Country: US (occurrence: None)
  Receive Date: 20250820
  Receipt Date: 20250820
  Transmission Date: 20251020
  Serious: Yes (Life-Threatening, Hospitalization, Disabling, Other)
  Sender: FDA-CTU
  Company Number: None

PATIENT
  Age: 59 Year
  Sex: Female

DRUGS (1)
  1. RUXIENCE [Suspect]
     Active Substance: RITUXIMAB-PVVR
     Indication: Sjogren^s syndrome
     Dates: start: 20250204, end: 20250204

REACTIONS (3)
  - Infusion related reaction [None]
  - Serum sickness [None]
  - Pulmonary embolism [None]

NARRATIVE: CASE EVENT DATE: 20250214
